FAERS Safety Report 5384808-4 (Version None)
Quarter: 2007Q3

REPORT INFORMATION
  Report Type: 
  Country: None (occurrence: None)
  Receive Date: 20070711
  Receipt Date: 20070703
  Transmission Date: 20080115
  Serious: Yes (Hospitalization, Other)
  Sender: FDA-Public Use
  Company Number: IT-GILEAD-2007-0012250

PATIENT
  Sex: Male

DRUGS (10)
  1. TRUVADA [Suspect]
     Indication: HIV INFECTION
     Route: 048
     Dates: start: 20061101, end: 20070517
  2. REYATAZ [Suspect]
     Indication: HIV INFECTION
     Route: 048
     Dates: start: 20061101, end: 20070517
  3. NORVIR [Suspect]
     Indication: HIV INFECTION
     Route: 048
     Dates: start: 20061101, end: 20070517
  4. FUZEON [Concomitant]
  5. KALETRA [Concomitant]
  6. ABACAVIR/EPIVIR [Concomitant]
  7. METFORMIN HCL [Concomitant]
     Dates: start: 20061001, end: 20070517
  8. ENAPREN [Concomitant]
     Dates: start: 20070101, end: 20070517
  9. WELLVONE [Concomitant]
     Dates: start: 20061001, end: 20070517
  10. SOLOSA [Concomitant]
     Dates: start: 20070101, end: 20070517

REACTIONS (2)
  - KAPOSI'S SARCOMA [None]
  - RENAL FAILURE ACUTE [None]
